FAERS Safety Report 8315082-4 (Version None)
Quarter: 2012Q2

REPORT INFORMATION
  Report Type: 
  Country: None (occurrence: None)
  Receive Date: 20120426
  Receipt Date: 20120417
  Transmission Date: 20120825
  Serious: Yes (Other)
  Sender: FDA-Public Use
  Company Number: US-PFIZER INC-US-WYE-H05023708

PATIENT
  Age: 54 Year
  Sex: Female
  Weight: 54 kg

DRUGS (4)
  1. PROVERA [Suspect]
     Indication: HORMONE REPLACEMENT THERAPY
     Dosage: 10 MG, UNK
     Route: 048
     Dates: start: 19810101, end: 19900101
  2. PREMARIN [Suspect]
     Indication: BACK PAIN
  3. PREMARIN [Suspect]
     Indication: HORMONE REPLACEMENT THERAPY
     Dosage: 0.625 MG, UNK
     Route: 048
     Dates: start: 19810101, end: 19900101
  4. PROVERA [Suspect]
     Indication: BACK PAIN

REACTIONS (6)
  - ANXIETY [None]
  - COLON CANCER [None]
  - DEPRESSION [None]
  - DEVICE RELATED INFECTION [None]
  - BREAST CANCER [None]
  - STAPHYLOCOCCAL INFECTION [None]
